FAERS Safety Report 23352579 (Version 1)
Quarter: 2023Q4

REPORT INFORMATION
  Report Type: Report from Study
  Country: US (occurrence: US)
  Receive Date: 20231230
  Receipt Date: 20231230
  Transmission Date: 20240109
  Serious: Yes (Hospitalization, Other)
  Sender: FDA-Public Use
  Company Number: US-ABBVIE-5561260

PATIENT
  Sex: Female

DRUGS (1)
  1. RINVOQ [Suspect]
     Active Substance: UPADACITINIB
     Indication: Ankylosing spondylitis
     Dosage: LAST ADMIN DATE 2023
     Route: 048
     Dates: start: 202307

REACTIONS (5)
  - Spinal nerve stimulator implantation [Unknown]
  - Dehydration [Unknown]
  - Hypotension [Unknown]
  - Spinal nerve stimulator removal [Unknown]
  - Spinal nerve stimulator implantation [Unknown]

NARRATIVE: CASE EVENT DATE: 20230101
